FAERS Safety Report 7461221-7 (Version None)
Quarter: 2011Q2

REPORT INFORMATION
  Report Type: 
  Country: None (occurrence: None)
  Receive Date: 20110505
  Receipt Date: 20110428
  Transmission Date: 20111010
  Serious: Yes (Other)
  Sender: FDA-Public Use
  Company Number: IT-BRISTOL-MYERS SQUIBB COMPANY-15717796

PATIENT
  Age: 65 Year
  Sex: Male

DRUGS (4)
  1. ERBITUX [Suspect]
     Indication: COLON CANCER
     Dosage: STRENGTH 5 MG/ML
     Dates: start: 20110110
  2. IRINOTECAN HCL [Suspect]
     Indication: COLON CANCER
     Dates: start: 20110110, end: 20110325
  3. FLUOROURACIL [Suspect]
     Indication: COLON CANCER
     Dosage: BOLUS 748 MG
     Route: 042
     Dates: start: 20110110, end: 20110325
  4. FOLIC ACID [Suspect]
     Indication: COLON CANCER
     Dates: start: 20110110, end: 20110325

REACTIONS (1)
  - HAEMOGLOBIN DECREASED [None]
